FAERS Safety Report 7009413-5 (Version None)
Quarter: 2010Q3

REPORT INFORMATION
  Report Type: 
  Country: None (occurrence: None)
  Receive Date: 20100923
  Receipt Date: 20100914
  Transmission Date: 20110219
  Serious: Yes (Other)
  Sender: FDA-Public Use
  Company Number: US-BAYER-201020073BCC

PATIENT
  Age: 52 Year
  Sex: Female
  Weight: 75 kg

DRUGS (3)
  1. ASPIRIN [Suspect]
     Indication: PRODUCT USED FOR UNKNOWN INDICATION
     Dosage: TOTAL DAILY DOSE: 650 MG  UNIT DOSE: 325 MG
     Route: 048
  2. ASPIRIN [Suspect]
     Dosage: TOTAL DAILY DOSE: 1300 MG  UNIT DOSE: 325 MG
     Route: 048
  3. VITAMINS [Concomitant]
     Route: 065

REACTIONS (8)
  - ASTHENIA [None]
  - BACK PAIN [None]
  - CEREBROVASCULAR ACCIDENT [None]
  - CHEST PAIN [None]
  - DYSPNOEA [None]
  - FATIGUE [None]
  - HEART RATE IRREGULAR [None]
  - MYOCARDIAL INFARCTION [None]
